FAERS Safety Report 21467596 (Version 1)
Quarter: 2022Q4

REPORT INFORMATION
  Report Type: Spontaneous
  Country: DE (occurrence: DE)
  Receive Date: 20221017
  Receipt Date: 20221017
  Transmission Date: 20230113
  Serious: Yes (Hospitalization)
  Sender: FDA-Public Use
  Company Number: DE-ADRED-08250-01

PATIENT
  Age: 63 Year
  Sex: Male
  Weight: 75 kg

DRUGS (1)
  1. STIVARGA [Suspect]
     Active Substance: REGORAFENIB
     Dosage: (SCHEME SINCE 27-JAN-2021)

REACTIONS (14)
  - Oropharyngeal pain [Unknown]
  - Vomiting [Unknown]
  - Abdominal pain lower [Unknown]
  - Pain [Unknown]
  - Condition aggravated [Unknown]
  - Nasopharyngitis [Unknown]
  - Electrolyte imbalance [Unknown]
  - Nausea [Unknown]
  - Constipation [Unknown]
  - Dyspnoea [Unknown]
  - Anaemia [Unknown]
  - Systemic infection [Unknown]
  - Renal impairment [Unknown]
  - General physical health deterioration [Unknown]
